FAERS Safety Report 17228352 (Version 1)
Quarter: 2020Q1

REPORT INFORMATION
  Report Type: Spontaneous
  Country: SE (occurrence: SE)
  Receive Date: 20200103
  Receipt Date: 20200103
  Transmission Date: 20200409
  Serious: Yes (Hospitalization)
  Sender: FDA-Public Use
  Company Number: SE-TEVA-2019-SE-1160901

PATIENT
  Sex: Female

DRUGS (3)
  1. QUETIAPINE. [Suspect]
     Active Substance: QUETIAPINE
     Dosage: 750 MG
     Route: 065
     Dates: start: 20190616, end: 20190616
  2. ATARAX [Suspect]
     Active Substance: HYDROXYZINE HYDROCHLORIDE
     Dosage: 630 MG
     Dates: start: 20190616, end: 20190616
  3. PROPAVAN [Suspect]
     Active Substance: PROPIOMAZINE
     Dosage: 40 ST, 1 GM
     Route: 048
     Dates: start: 20190616, end: 20190616

REACTIONS (3)
  - Intentional self-injury [Unknown]
  - Akathisia [Unknown]
  - Intentional overdose [Unknown]

NARRATIVE: CASE EVENT DATE: 20190616
